FAERS Safety Report 10550281 (Version 2)
Quarter: 2014Q4

REPORT INFORMATION
  Report Type: Spontaneous
  Country: BR (occurrence: BR)
  Receive Date: 20141029
  Receipt Date: 20141216
  Transmission Date: 20150529
  Serious: Yes (Other)
  Sender: FDA-Public Use
  Company Number: BR-AMGEN-BRASP2014083062

PATIENT
  Age: 67 Year
  Sex: Female
  Weight: 72 kg

DRUGS (8)
  1. ENBREL [Suspect]
     Active Substance: ETANERCEPT
     Indication: RHEUMATOID ARTHRITIS
     Dosage: 50 MG, 1X/WEEK
     Route: 058
     Dates: start: 20120105
  2. INDAPEN                            /00340101/ [Concomitant]
     Indication: DIURETIC THERAPY
     Dosage: 1.5MG, 1X/DAY
     Dates: start: 201406
  3. LOSARTAN POTASSIUM. [Concomitant]
     Active Substance: LOSARTAN POTASSIUM
     Dosage: UNK, 2X/DAY
     Dates: start: 201406
  4. NORIPURUM [Concomitant]
     Active Substance: IRON POLYMALTOSE
     Indication: ANAEMIA
     Dosage: UNK, 1X/DAY
     Dates: start: 2012
  5. CLONAZEPAM. [Concomitant]
     Active Substance: CLONAZEPAM
     Dosage: UNSPECIFIED DOSE, SOMETIMES
     Dates: start: 2011
  6. PREDNISONE. [Concomitant]
     Active Substance: PREDNISONE
     Dosage: UNK, ALTERNATE DAY
     Dates: start: 1999
  7. DONAREN [Concomitant]
     Active Substance: TRAZODONE HYDROCHLORIDE
     Indication: SLEEP DISORDER
     Dosage: UNK
     Dates: start: 2012
  8. PANTOPRAZOLE [Concomitant]
     Active Substance: PANTOPRAZOLE SODIUM
     Indication: GASTRIC DISORDER
     Dosage: UNK

REACTIONS (5)
  - Blood uric acid increased [Recovered/Resolved]
  - Constipation [Not Recovered/Not Resolved]
  - Injection site erythema [Unknown]
  - Injection site mass [Unknown]
  - Skin cancer [Recovered/Resolved]

NARRATIVE: CASE EVENT DATE: 2012
